FAERS Safety Report 9414898 (Version 2)
Quarter: 2013Q3

REPORT INFORMATION
  Report Type: Spontaneous
  Country: US (occurrence: US)
  Receive Date: 20130723
  Receipt Date: 20130910
  Transmission Date: 20140515
  Serious: Yes (Other)
  Sender: FDA-Public Use
  Company Number: US-TEVA-420404USA

PATIENT
  Sex: Female
  Weight: 62.2 kg

DRUGS (6)
  1. NUVIGIL [Suspect]
  2. PROVIGIL [Suspect]
  3. XYREM [Suspect]
  4. AMPHETAMINE- DEXTROAMPHETAMINE [Concomitant]
     Indication: NARCOLEPSY
  5. PRILOSEC [Concomitant]
     Indication: GASTROOESOPHAGEAL REFLUX DISEASE
  6. IUD NOS [Concomitant]

REACTIONS (17)
  - Osteonecrosis of jaw [Recovered/Resolved with Sequelae]
  - Haemorrhage [Unknown]
  - Haematochezia [Unknown]
  - Pain in jaw [Recovered/Resolved with Sequelae]
  - Somnambulism [Unknown]
  - Swelling face [Recovered/Resolved]
  - Tinnitus [Not Recovered/Not Resolved]
  - Neck pain [Recovered/Resolved]
  - Weight increased [Unknown]
  - Somnolence [Unknown]
  - Arthralgia [Unknown]
  - Muscle spasms [Unknown]
  - Pain [Unknown]
  - Fatigue [Unknown]
  - Vision blurred [Unknown]
  - Thirst [Unknown]
  - Rhinorrhoea [Unknown]
